FAERS Safety Report 20207371 (Version 11)
Quarter: 2025Q3

REPORT INFORMATION
  Report Type: Spontaneous
  Country: IN (occurrence: IN)
  Receive Date: 20211220
  Receipt Date: 20250916
  Transmission Date: 20251021
  Serious: Yes (Hospitalization, Other)
  Sender: PFIZER
  Company Number: IN-PFIZER INC-2018136241

PATIENT
  Age: 64 Year
  Sex: Male
  Weight: 68 kg

DRUGS (13)
  1. SUTENT [Suspect]
     Active Substance: SUNITINIB MALATE
     Indication: Metastatic renal cell carcinoma
     Route: 048
     Dates: start: 20170222
  2. SUTENT [Suspect]
     Active Substance: SUNITINIB MALATE
     Route: 048
     Dates: start: 201702
  3. SUTENT [Suspect]
     Active Substance: SUNITINIB MALATE
  4. SUTENT [Suspect]
     Active Substance: SUNITINIB MALATE
  5. SUTENT [Suspect]
     Active Substance: SUNITINIB MALATE
     Dosage: 37.5 MG, 1X/DAY
     Route: 048
  6. PYRIDOXINE HYDROCHLORIDE [Concomitant]
     Active Substance: PYRIDOXINE HYDROCHLORIDE
     Dosage: UNK, 2X/DAY (6 MONTHS)
  7. PYRIDOXINE HYDROCHLORIDE [Concomitant]
     Active Substance: PYRIDOXINE HYDROCHLORIDE
  8. PYRIDOXINE HYDROCHLORIDE [Concomitant]
     Active Substance: PYRIDOXINE HYDROCHLORIDE
  9. PYRIDOXINE HYDROCHLORIDE [Concomitant]
     Active Substance: PYRIDOXINE HYDROCHLORIDE
  10. COTARYL [Concomitant]
  11. COTARYL [Concomitant]
  12. HAFOOS [Concomitant]
  13. HAFOOS [Concomitant]

REACTIONS (13)
  - COVID-19 [Unknown]
  - Blood pressure systolic increased [Unknown]
  - Anaemia [Unknown]
  - Second primary malignancy [Unknown]
  - Gastric neoplasm [Unknown]
  - Metastasis [Unknown]
  - Blood pressure diastolic decreased [Unknown]
  - Drug hypersensitivity [Unknown]
  - Arthropathy [Unknown]
  - Respiratory disorder [Unknown]
  - Gastrointestinal disorder [Unknown]
  - Lipids abnormal [Unknown]
  - Off label use [Unknown]

NARRATIVE: CASE EVENT DATE: 20170222
